FAERS Safety Report 10300063 (Version 1)
Quarter: 2014Q3

REPORT INFORMATION
  Report Type: Spontaneous
  Country: CA (occurrence: CA)
  Receive Date: 20140711
  Receipt Date: 20140711
  Transmission Date: 20150326
  Serious: Yes (Other)
  Sender: FDA-Public Use
  Company Number: CA-GLAXOSMITHKLINE-A1080683A

PATIENT
  Age: 53 Year
  Sex: Male

DRUGS (6)
  1. SYMBICORT [Concomitant]
     Active Substance: BUDESONIDE\FORMOTEROL FUMARATE DIHYDRATE
  2. AVODART [Suspect]
     Active Substance: DUTASTERIDE
     Indication: PRODUCT USED FOR UNKNOWN INDICATION
     Dosage: 1CAP PER DAY
     Route: 048
  3. COZAAR [Concomitant]
     Active Substance: LOSARTAN POTASSIUM
  4. CLONIDINE. [Concomitant]
     Active Substance: CLONIDINE
  5. ALFUZOSIN [Concomitant]
     Active Substance: ALFUZOSIN
  6. VENTOLIN [Concomitant]
     Active Substance: ALBUTEROL SULFATE

REACTIONS (1)
  - Mass [Unknown]
